FAERS Safety Report 4826686-5 (Version None)
Quarter: 2005Q4

REPORT INFORMATION
  Report Type: 
  Country: None (occurrence: None)
  Receive Date: 20051014
  Receipt Date: 20050805
  Transmission Date: 20060501
  Serious: No
  Sender: FDA-Public Use
  Company Number: 2005SP002256

PATIENT
  Age: 56 Year
  Sex: Female
  Weight: 39.0093 kg

DRUGS (3)
  1. LUNESTA [Suspect]
     Indication: INSOMNIA
     Dosage: 3 MG;HS;ORAL
     Route: 048
     Dates: start: 20050803, end: 20050804
  2. ULTRAM [Concomitant]
  3. FIORICET [Concomitant]

REACTIONS (3)
  - DYSGEUSIA [None]
  - INITIAL INSOMNIA [None]
  - PAROSMIA [None]
